FAERS Safety Report 13043506 (Version 2)
Quarter: 2017Q1

REPORT INFORMATION
  Report Type: Spontaneous
  Country: MX (occurrence: MX)
  Receive Date: 20161220
  Receipt Date: 20170217
  Transmission Date: 20170428
  Serious: Yes (Other)
  Sender: FDA-Public Use
  Company Number: MX-OCTA-GAM43316MX

PATIENT

DRUGS (1)
  1. OCTAGAM IMMUNE GLOBULIN (HUMAN) [Suspect]
     Active Substance: HUMAN IMMUNOGLOBULIN G
     Indication: PREMATURE BABY
     Route: 042
     Dates: start: 20161201, end: 20161201

REACTIONS (15)
  - Pyrexia [Recovered/Resolved]
  - Infusion related reaction [None]
  - Decreased activity [Recovered/Resolved]
  - Tachycardia [Recovered/Resolved]
  - Hepatomegaly [Recovered/Resolved]
  - Piloerection [Recovered/Resolved]
  - Skin discolouration [Recovered/Resolved]
  - Neonatal tachycardia [None]
  - Salivary hypersecretion [Recovered/Resolved]
  - Pallor [Recovered/Resolved]
  - Cyanosis [Recovered/Resolved]
  - Tachypnoea [Recovered/Resolved]
  - Cyanosis neonatal [None]
  - Neonatal tachypnoea [None]
  - Neonatal hepatomegaly [None]

NARRATIVE: CASE EVENT DATE: 20161201
